FAERS Safety Report 7369979-2 (Version None)
Quarter: 2011Q1

REPORT INFORMATION
  Report Type: 
  Country: None (occurrence: None)
  Receive Date: 20110323
  Receipt Date: 20110309
  Transmission Date: 20110831
  Serious: Yes (Hospitalization, Other)
  Sender: FDA-Public Use
  Company Number: PHHY2011FR20032

PATIENT
  Sex: Female

DRUGS (4)
  1. EFFERALGAN CODEINE [Concomitant]
  2. BI-PROFENID [Concomitant]
     Dosage: 1 DF, EVERY 2 TO 3 DAYS
  3. EXJADE [Suspect]
     Indication: IRON OVERLOAD
     Dosage: 1500 MG, DAILY
     Dates: start: 20090127, end: 20100312
  4. PARACETAMOL [Concomitant]

REACTIONS (6)
  - INFECTION [None]
  - CYTOLYTIC HEPATITIS [None]
  - EFFUSION [None]
  - HEPATOMEGALY [None]
  - SICKLE CELL ANAEMIA WITH CRISIS [None]
  - CONJUNCTIVITIS [None]
